FAERS Safety Report 4342633-7 (Version None)
Quarter: 2004Q2

REPORT INFORMATION
  Report Type: 
  Country: None (occurrence: None)
  Receive Date: 20040416
  Receipt Date: 20040331
  Transmission Date: 20050107
  Serious: Yes (Hospitalization)
  Sender: FDA-Public Use
  Company Number: 200401496

PATIENT
  Age: 90 Year
  Sex: Female

DRUGS (12)
  1. BOTOX [Suspect]
     Indication: BLEPHAROSPASM
  2. DYSPORT [Suspect]
     Indication: BLEPHAROSPASM
  3. NITOLINEGUAL [Concomitant]
  4. ZOCOR [Concomitant]
  5. IMDUR [Concomitant]
  6. SELO-ZOK [Concomitant]
  7. ALBYL-E [Concomitant]
  8. TRIATEC [Concomitant]
  9. CARDIZEM [Concomitant]
  10. DIURAL [Concomitant]
  11. NITRODERM [Concomitant]
  12. CALCIGRAN [Concomitant]

REACTIONS (16)
  - CARDIAC DISORDER [None]
  - CHILLS [None]
  - DRUG INEFFECTIVE [None]
  - DRUG TOLERANCE DECREASED [None]
  - EYELID PTOSIS [None]
  - FACIAL PALSY [None]
  - FACIAL PARESIS [None]
  - FEELING ABNORMAL [None]
  - HEADACHE [None]
  - ILEUS PARALYTIC [None]
  - INFLAMMATION [None]
  - NAUSEA [None]
  - OVERDOSE [None]
  - SPEECH DISORDER [None]
  - TREMOR [None]
  - VOMITING [None]
